FAERS Safety Report 20982161 (Version 1)
Quarter: 2022Q2

REPORT INFORMATION
  Report Type: Spontaneous
  Country: US (occurrence: US)
  Receive Date: 20220620
  Receipt Date: 20220620
  Transmission Date: 20220721
  Serious: Yes (Hospitalization, Other)
  Sender: FDA-Public Use
  Company Number: US-PFIZER INC-PV202200000014

PATIENT
  Age: 18 Year
  Sex: Male

DRUGS (4)
  1. METHYLPREDNISOLONE ACETATE [Suspect]
     Active Substance: METHYLPREDNISOLONE ACETATE
     Indication: Lymphocytic leukaemia
     Dosage: UNK, CYCLIC
     Route: 048
  2. VINCRISTINE SULFATE [Suspect]
     Active Substance: VINCRISTINE SULFATE
     Indication: Lymphocytic leukaemia
     Dosage: UNK, CYCLIC
     Route: 048
  3. PEG/L-ASPARAGINASE [Suspect]
     Active Substance: PEGASPARGASE
     Indication: Lymphocytic leukaemia
     Dosage: UNK, CYCLIC
     Route: 048
  4. IMATINIB [Concomitant]
     Active Substance: IMATINIB
     Indication: Trisomy 21
     Dosage: UNK, DAILY
     Route: 048

REACTIONS (4)
  - Drug ineffective [Recovered/Resolved]
  - Pancytopenia [Recovered/Resolved]
  - Fungaemia [Recovered/Resolved]
  - Pericardial effusion [Recovered/Resolved]
